FAERS Safety Report 5301791-8 (Version None)
Quarter: 2007Q1

REPORT INFORMATION
  Report Type: 
  Country: None (occurrence: None)
  Receive Date: 20070201
  Receipt Date: 20061213
  Transmission Date: 20070707
  Serious: No
  Sender: FDA-Public Use
  Company Number: 2006PV026942

PATIENT
  Age: 33 Year
  Sex: Female

DRUGS (1)
  1. BYETTA [Suspect]
     Indication: DRUG USE FOR UNKNOWN INDICATION
     Dosage: 10 MCG;BID;SC
     Route: 058

REACTIONS (4)
  - BLOOD GLUCOSE ABNORMAL [None]
  - INFLUENZA [None]
  - INJECTION SITE COLDNESS [None]
  - INJECTION SITE IRRITATION [None]
